FAERS Safety Report 6061723-4 (Version None)
Quarter: 2009Q1

REPORT INFORMATION
  Report Type: 
  Country: None (occurrence: None)
  Receive Date: 20090202
  Receipt Date: 20090127
  Transmission Date: 20090719
  Serious: Yes (Hospitalization)
  Sender: FDA-Public Use
  Company Number: AU-ASTRAZENECA-2009AP00817

PATIENT
  Age: 22923 Day
  Sex: Female

DRUGS (2)
  1. ARIMIDEX [Suspect]
     Indication: BREAST CANCER
     Route: 048
     Dates: start: 20080901
  2. DIGOXIN [Concomitant]
     Indication: ATRIAL FIBRILLATION

REACTIONS (4)
  - ARTHRALGIA [None]
  - ASTHENIA [None]
  - HEART RATE INCREASED [None]
  - PARAESTHESIA [None]
